FAERS Safety Report 20748990 (Version 1)
Quarter: 2022Q2

REPORT INFORMATION
  Report Type: Spontaneous
  Country: FR (occurrence: FR)
  Receive Date: 20220426
  Receipt Date: 20220426
  Transmission Date: 20220721
  Serious: Yes (Other)
  Sender: FDA-Public Use
  Company Number: FR-AFSSAPS-BS20220786

PATIENT
  Age: 58 Year
  Sex: Male
  Weight: 87 kg

DRUGS (5)
  1. LIDOCAINE [Suspect]
     Active Substance: LIDOCAINE
     Indication: Anaesthesia
     Dosage: 50 MILLIGRAM (TOTAL)
     Route: 042
     Dates: start: 20211115, end: 20211115
  2. CEFAZOLIN SODIUM [Suspect]
     Active Substance: CEFAZOLIN SODIUM
     Indication: Antibiotic prophylaxis
     Dosage: 2 GRAM (TOTAL)
     Route: 042
     Dates: start: 20211115, end: 20211115
  3. KETAMINE [Suspect]
     Active Substance: KETAMINE
     Indication: Anaesthesia
     Dosage: 30 MILLIGRAM (TOTAL)
     Route: 042
     Dates: start: 20211115, end: 20211115
  4. PROPOFOL [Suspect]
     Active Substance: PROPOFOL
     Indication: Anaesthesia
     Dosage: 580 MILLIGRAM (TOTAL)
     Route: 042
     Dates: start: 20211115, end: 20211115
  5. SUFENTANIL [Suspect]
     Active Substance: SUFENTANIL
     Indication: Anaesthesia
     Dosage: 25 MICROGRAM (TOTAL)
     Route: 042
     Dates: start: 20211115, end: 20211115

REACTIONS (3)
  - Hypoxia [Recovered/Resolved]
  - Procedural hypotension [Recovered/Resolved]
  - Rash maculo-papular [Recovered/Resolved]

NARRATIVE: CASE EVENT DATE: 20211115
